FAERS Safety Report 23669470 (Version 1)
Quarter: 2024Q1

REPORT INFORMATION
  Report Type: Spontaneous
  Country: US (occurrence: None)
  Receive Date: 20240324
  Receipt Date: 20240324
  Transmission Date: 20240409
  Serious: Yes (Other)
  Sender: FDA-Public Use
  Company Number: None

PATIENT
  Age: 59 Year
  Sex: Female
  Weight: 70.65 kg

DRUGS (12)
  1. QULIPTA [Suspect]
     Active Substance: ATOGEPANT
     Indication: Migraine
     Dosage: OTHER QUANTITY : 7 CAPSULE(S);?FREQUENCY : DAILY;?
     Route: 048
     Dates: start: 20240313, end: 20240319
  2. Lanotrigine [Concomitant]
  3. BUPROPION [Concomitant]
     Active Substance: BUPROPION
  4. LOSARTAN [Concomitant]
     Active Substance: LOSARTAN
  5. ATROVASTIN [Concomitant]
  6. ROBAXIN [Concomitant]
  7. OMEPRAZOLE [Concomitant]
     Active Substance: OMEPRAZOLE
  8. ONDANSETRON [Concomitant]
     Active Substance: ONDANSETRON
  9. TESTOSTERONE [Concomitant]
     Active Substance: TESTOSTERONE
  10. ESTRIDOL [Concomitant]
  11. TYLENOL [Concomitant]
     Active Substance: ACETAMINOPHEN
  12. STOOL SOFTENER BENEFITED MULTIVITAMIN [Concomitant]

REACTIONS (13)
  - Headache [None]
  - Chest pain [None]
  - Blood pressure increased [None]
  - Heart rate increased [None]
  - Decreased appetite [None]
  - Energy increased [None]
  - Nausea [None]
  - Tremor [None]
  - Dysphonia [None]
  - Muscular weakness [None]
  - Abdominal distension [None]
  - Skin tightness [None]
  - Paraesthesia [None]

NARRATIVE: CASE EVENT DATE: 20240322
